FAERS Safety Report 14674271 (Version 1)
Quarter: 2018Q1

REPORT INFORMATION
  Report Type: Spontaneous
  Country: US (occurrence: US)
  Receive Date: 20180322
  Receipt Date: 20180322
  Transmission Date: 20180509
  Serious: Yes (Other)
  Sender: FDA-Public Use
  Company Number: None

PATIENT
  Age: 71 Year
  Sex: Male
  Weight: 81 kg

DRUGS (1)
  1. PAIN RELIEF EXTRA STRENGTH [Suspect]
     Active Substance: ACETAMINOPHEN
     Indication: PAIN
     Dosage: ?          OTHER STRENGTH:NOT ON LABEL!;?
     Route: 048
     Dates: start: 20180224, end: 20180226

REACTIONS (2)
  - Accidental overdose [None]
  - Product label confusion [None]

NARRATIVE: CASE EVENT DATE: 20180224
